FAERS Safety Report 6593151-7 (Version None)
Quarter: 2010Q1

REPORT INFORMATION
  Report Type: 
  Country: None (occurrence: None)
  Receive Date: 20100212
  Receipt Date: 20100129
  Transmission Date: 20100710
  Serious: Yes (Death, Hospitalization)
  Sender: FDA-Public Use
  Company Number: BR-1180680

PATIENT
  Age: 1 Month
  Sex: Male

DRUGS (1)
  1. MYDRIACYL [Suspect]
     Indication: OPHTHALMOLOGICAL EXAMINATION
     Dosage: 1 GTT X5 MIN; 4-5 TIMES; OPHTHALMIC
     Route: 047

REACTIONS (6)
  - ACUTE RESPIRATORY FAILURE [None]
  - ASPIRATION [None]
  - ASTHENIA [None]
  - CARDIO-RESPIRATORY ARREST [None]
  - MALAISE [None]
  - SKIN DISCOLOURATION [None]
